APPROVED DRUG PRODUCT: ZESTRIL
Active Ingredient: LISINOPRIL
Strength: 2.5MG
Dosage Form/Route: TABLET;ORAL
Application: N019777 | Product #005 | TE Code: AB
Applicant: TWI PHARMACEUTICALS INC
Approved: Apr 29, 1993 | RLD: Yes | RS: No | Type: RX